FAERS Safety Report 4295418-4 (Version None)
Quarter: 2004Q1

REPORT INFORMATION
  Report Type: 
  Country: None (occurrence: None)
  Receive Date: 20040212
  Receipt Date: 20030826
  Transmission Date: 20041129
  Serious: Yes (Hospitalization)
  Sender: FDA-Public Use
  Company Number: F04200300129

PATIENT
  Age: 75 Year
  Sex: Female

DRUGS (4)
  1. ARIXTRA [Suspect]
     Indication: OSTEOSYNTHESIS
     Dosage: 2.5 MG OD, SUBCUTANEOUS
     Route: 058
     Dates: start: 20030728, end: 20030804
  2. ARIXTRA [Suspect]
     Indication: THROMBOSIS PROPHYLAXIS
     Dosage: 2.5 MG OD, SUBCUTANEOUS
     Route: 058
     Dates: start: 20030728, end: 20030804
  3. MARCUMAR [Concomitant]
  4. EMBOLEX [Concomitant]

REACTIONS (3)
  - CEREBROVASCULAR ACCIDENT [None]
  - DISTURBANCE IN ATTENTION [None]
  - SPEECH DISORDER [None]
